FAERS Safety Report 9261929 (Version 1)
Quarter: 2013Q2

REPORT INFORMATION
  Report Type: Spontaneous
  Country: BR (occurrence: BR)
  Receive Date: 20130429
  Receipt Date: 20130429
  Transmission Date: 20140414
  Serious: Yes (Hospitalization)
  Sender: FDA-Public Use
  Company Number: BR-MERCK-1304BRA015613

PATIENT
  Age: 65 Year
  Sex: Female
  Weight: 57 kg

DRUGS (7)
  1. ZETIA [Suspect]
     Indication: BLOOD CHOLESTEROL INCREASED
     Dosage: 10 MG, QD
     Route: 048
     Dates: start: 2012
  2. ATENOLOL [Concomitant]
     Indication: HYPERTENSION
     Dosage: 200 MG, QD
     Route: 065
  3. METHYLDOPA [Concomitant]
     Indication: HYPERTENSION
     Dosage: 1000 MG, QD
     Route: 065
  4. MONOCORDIL [Concomitant]
     Indication: HYPERTENSION
     Dosage: 4 DF, QD
     Route: 065
  5. SYNTHROID [Concomitant]
     Indication: THYROID HORMONE REPLACEMENT THERAPY
     Dosage: 112 MICROGRAM, QD
     Route: 065
  6. SERTRALINE HYDROCHLORIDE [Concomitant]
     Indication: DEPRESSION
     Dosage: 150 MG, QD
     Route: 065
  7. SOMALGIN [Concomitant]
     Dosage: 81 MG, QD
     Route: 065

REACTIONS (2)
  - Prosthesis implantation [Recovered/Resolved]
  - Pain in extremity [Not Recovered/Not Resolved]
